FAERS Safety Report 13814497 (Version 1)
Quarter: 2017Q3

REPORT INFORMATION
  Report Type: Spontaneous
  Country: US (occurrence: US)
  Receive Date: 20170729
  Receipt Date: 20170729
  Transmission Date: 20171127
  Serious: Yes (Hospitalization)
  Sender: FDA-Public Use
  Company Number: None

PATIENT
  Age: 49 Year
  Sex: Female

DRUGS (2)
  1. LETARIS [Concomitant]
     Active Substance: AMBRISENTAN
  2. ADCIRCA [Suspect]
     Active Substance: TADALAFIL
     Indication: LUNG DISORDER
     Route: 048
     Dates: start: 201702, end: 20170727

REACTIONS (1)
  - Cardiac valve disease [None]

NARRATIVE: CASE EVENT DATE: 20170721
